FAERS Safety Report 6978713-7 (Version None)
Quarter: 2010Q3

REPORT INFORMATION
  Report Type: 
  Country: None (occurrence: None)
  Receive Date: 20100913
  Receipt Date: 20100903
  Transmission Date: 20110219
  Serious: Yes (Hospitalization)
  Sender: FDA-Public Use
  Company Number: B0670259A

PATIENT
  Sex: Female

DRUGS (2)
  1. LAMICTAL [Suspect]
     Indication: MYOCLONIC EPILEPSY
     Route: 048
     Dates: start: 20100705, end: 20100802
  2. DEPAKENE [Concomitant]
     Indication: MYOCLONIC EPILEPSY
     Dosage: 500MG PER DAY
     Route: 048

REACTIONS (10)
  - ABNORMAL SENSATION IN EYE [None]
  - CONJUNCTIVITIS [None]
  - DRY MOUTH [None]
  - HEPATOCELLULAR INJURY [None]
  - ORAL MUCOSAL EXFOLIATION [None]
  - PYREXIA [None]
  - RASH ERYTHEMATOUS [None]
  - RASH MACULOVESICULAR [None]
  - SKIN EXFOLIATION [None]
  - STEVENS-JOHNSON SYNDROME [None]
